FAERS Safety Report 6960372-0 (Version None)
Quarter: 2010Q3

REPORT INFORMATION
  Report Type: 
  Country: None (occurrence: None)
  Receive Date: 20100901
  Receipt Date: 20100719
  Transmission Date: 20110219
  Serious: Yes (Death, Other)
  Sender: FDA-Public Use
  Company Number: US-BAXTER-2009BH011482

PATIENT
  Age: 64 Year
  Sex: Female
  Weight: 73 kg

DRUGS (32)
  1. HEPARIN SODIUM INJECTION [Suspect]
     Indication: CENTRAL VENOUS CATHETERISATION
     Route: 042
     Dates: start: 20070401, end: 20080301
  2. HEPARIN SODIUM INJECTION [Suspect]
     Indication: DEEP VEIN THROMBOSIS
     Route: 042
     Dates: start: 20070401, end: 20080301
  3. HEPARIN SODIUM INJECTION [Suspect]
     Route: 040
     Dates: start: 20080222, end: 20080222
  4. HEPARIN SODIUM INJECTION [Suspect]
     Route: 040
     Dates: start: 20080222, end: 20080222
  5. HEPARIN SODIUM INJECTION [Suspect]
     Route: 041
     Dates: start: 20080222, end: 20080222
  6. HEPARIN SODIUM INJECTION [Suspect]
     Route: 041
     Dates: start: 20080222, end: 20080222
  7. HEPARIN SODIUM INJECTION [Suspect]
     Route: 041
     Dates: start: 20080223, end: 20080223
  8. HEPARIN SODIUM INJECTION [Suspect]
     Route: 041
     Dates: start: 20080223, end: 20080223
  9. FLUOROURACIL [Concomitant]
     Indication: PANCREATIC CARCINOMA
     Route: 042
  10. ACIPHEX [Concomitant]
     Indication: GASTROOESOPHAGEAL REFLUX DISEASE
     Route: 048
  11. BEVACIZUMAB [Concomitant]
     Indication: PANCREATIC CARCINOMA
     Route: 042
  12. CISPLATIN [Concomitant]
     Indication: PANCREATIC CARCINOMA
     Route: 042
  13. EPIRUBICIN [Concomitant]
     Indication: PANCREATIC CARCINOMA
     Route: 042
  14. ERLOTINIB HYDROCHLORIDE [Concomitant]
     Indication: PANCREATIC CARCINOMA
     Route: 042
  15. FUROSEMIDE [Concomitant]
     Indication: PRODUCT USED FOR UNKNOWN INDICATION
     Route: 048
  16. GEMCITABINE [Concomitant]
     Indication: PANCREATIC CARCINOMA
     Route: 042
  17. HYDROCODONE [Concomitant]
     Indication: PAIN
     Route: 048
  18. HYDROMORPHONE [Concomitant]
     Indication: PAIN
     Route: 048
  19. LOPERAMIDE [Concomitant]
     Indication: DIARRHOEA
     Route: 048
  20. IRINOTECAN HCL [Concomitant]
     Indication: PANCREATIC CARCINOMA
     Route: 042
  21. LACTULOSE [Concomitant]
     Indication: CONSTIPATION
     Route: 048
  22. LIPRAM [Concomitant]
     Indication: PRODUCT USED FOR UNKNOWN INDICATION
     Route: 048
  23. LOVENOX [Concomitant]
     Indication: DEEP VEIN THROMBOSIS
     Route: 058
  24. MAGNESIUM OXIDE [Concomitant]
     Indication: PRODUCT USED FOR UNKNOWN INDICATION
     Route: 048
  25. NORCO [Concomitant]
     Indication: BREAKTHROUGH PAIN
     Route: 048
  26. OXYCONTIN [Concomitant]
     Indication: PAIN
     Route: 048
  27. PHENERGAN [Concomitant]
     Indication: NAUSEA
     Route: 048
  28. POTASSIUM CHLORIDE [Concomitant]
     Indication: ELECTROLYTE SUBSTITUTION THERAPY
     Route: 048
  29. REGLAN [Concomitant]
     Indication: NAUSEA
     Route: 048
  30. SENNA [Concomitant]
     Indication: CONSTIPATION
     Route: 048
  31. SYNTHROID [Concomitant]
     Indication: HYPOTHYROIDISM
     Route: 048
  32. METOPROLOL TARTRATE [Concomitant]
     Indication: HYPERTENSION
     Route: 048

REACTIONS (13)
  - ABDOMINAL DISCOMFORT [None]
  - ASTHENIA [None]
  - DECREASED APPETITE [None]
  - DEEP VEIN THROMBOSIS [None]
  - DIARRHOEA [None]
  - DYSPNOEA [None]
  - EATING DISORDER [None]
  - INSOMNIA [None]
  - NAUSEA [None]
  - PANCREATIC CARCINOMA [None]
  - PRESYNCOPE [None]
  - PULMONARY EMBOLISM [None]
  - VOMITING [None]
